FAERS Safety Report 16251306 (Version 3)
Quarter: 2019Q2

REPORT INFORMATION
  Report Type: Spontaneous
  Country: KR (occurrence: KR)
  Receive Date: 20190429
  Receipt Date: 20190604
  Transmission Date: 20190711
  Serious: Yes (Hospitalization)
  Sender: FDA-Public Use
  Company Number: KR-009507513-1904KOR010644

PATIENT
  Sex: Male

DRUGS (24)
  1. KASHUT [Concomitant]
     Dosage: QUANTITY 2, DAYS 1
     Dates: start: 20190408, end: 20190408
  2. MORPHINE HCL JEIL [Concomitant]
     Dosage: QUANTITY 1, DAYS 11
     Dates: start: 20190408, end: 20190417
  3. ULTRACET [Concomitant]
     Active Substance: ACETAMINOPHEN\TRAMADOL HYDROCHLORIDE
     Dosage: QUANTITY 1, DAYS 2
     Route: 048
     Dates: start: 20190408, end: 20190415
  4. ULTRACET [Concomitant]
     Active Substance: ACETAMINOPHEN\TRAMADOL HYDROCHLORIDE
     Dosage: QUANTITY 1, DAYS 27
     Route: 048
     Dates: start: 20190409, end: 20190417
  5. NORZYME [Concomitant]
     Dosage: QUANTITY 2, DAYS 2
     Route: 048
     Dates: start: 20190409, end: 20190415
  6. TARGIN [Concomitant]
     Active Substance: NALOXONE HYDROCHLORIDE\OXYCODONE HYDROCHLORIDE
     Dosage: QUANTITY 1, DAYS 1
     Route: 048
     Dates: start: 20190501, end: 20190501
  7. KEYTRUDA [Suspect]
     Active Substance: PEMBROLIZUMAB
     Indication: BILE DUCT CANCER
     Dosage: QUANTITY 2, DAYS1
     Dates: start: 20190410
  8. LANSTON [Concomitant]
     Active Substance: LANSOPRAZOLE
     Dosage: QUANTITY 1, DAYS 29
     Dates: start: 20190408, end: 20190417
  9. NORZYME [Concomitant]
     Dosage: QUANTITY 2, DAYS 1
     Route: 048
     Dates: start: 20190430, end: 20190430
  10. LANSTON [Concomitant]
     Active Substance: LANSOPRAZOLE
     Dosage: 30 MILLIGRAM;QUANTITY 1, DAYS 25
     Dates: start: 20190430
  11. TARGIN [Concomitant]
     Active Substance: NALOXONE HYDROCHLORIDE\OXYCODONE HYDROCHLORIDE
     Dosage: QUANTITY 1, DAYS 2
     Route: 048
     Dates: start: 20190409, end: 20190410
  12. MORPHINE HCL JEIL [Concomitant]
     Dosage: QUANTITY 1, DAYS 5
     Dates: start: 20190409, end: 20190416
  13. TARGIN [Concomitant]
     Active Substance: NALOXONE HYDROCHLORIDE\OXYCODONE HYDROCHLORIDE
     Dosage: QUANTITY 2, DAYS 24
     Route: 048
     Dates: start: 20190430
  14. KEYTRUDA [Suspect]
     Active Substance: PEMBROLIZUMAB
     Dosage: QUANTITY 2, DAYS1
     Dates: start: 20190501, end: 20190501
  15. NORZYME [Concomitant]
     Dosage: QUANTITY 3, DAYS 26
     Route: 048
     Dates: start: 20190410, end: 20190417
  16. TARGIN [Concomitant]
     Active Substance: NALOXONE HYDROCHLORIDE\OXYCODONE HYDROCHLORIDE
     Dosage: QUANTITY 1, DAYS 2
     Route: 048
     Dates: start: 20190408, end: 20190408
  17. PETHIDINE HCL HANA [Concomitant]
     Dosage: QUANTITY 1, DAYS 2
     Dates: start: 20190409, end: 20190412
  18. ULTRACET [Concomitant]
     Active Substance: ACETAMINOPHEN\TRAMADOL HYDROCHLORIDE
     Dosage: QUANTITY 2, DAYS 25
     Route: 048
     Dates: start: 20190430, end: 20190509
  19. NORZYME [Concomitant]
     Dosage: QUANTITY 1, DAYS 1
     Route: 048
     Dates: start: 20190408, end: 20190408
  20. PETHIDINE HCL HANA [Concomitant]
     Dosage: QUANTITY 1, DAYS 1
     Dates: start: 20190412, end: 20190412
  21. NORZYME [Concomitant]
     Dosage: QUANTITY 3, DAYS 24
     Route: 048
     Dates: start: 20190501
  22. MORPHINE HCL JEIL [Concomitant]
     Dosage: QUANTITY 1, DAYS 5
     Dates: start: 20190408, end: 20190415
  23. MORPHINE HCL JEIL [Concomitant]
     Dosage: 0.5 MILLILITER; QUANTITY 2, DAYS 1
     Dates: start: 20190501, end: 20190501
  24. MORPHINE HCL JEIL [Concomitant]
     Dosage: 0.5 MILLILITER;QUANTITY 1, DAYS 1
     Dates: start: 20190503, end: 20190503

REACTIONS (5)
  - Haematuria [Unknown]
  - Product use in unapproved indication [Unknown]
  - Adverse event [Unknown]
  - Abdominal pain [Unknown]
  - Adverse event [Unknown]

NARRATIVE: CASE EVENT DATE: 201904
